FAERS Safety Report 7232810-X (Version None)
Quarter: 2011Q1

REPORT INFORMATION
  Report Type: 
  Country: None (occurrence: None)
  Receive Date: 20110106
  Receipt Date: 20101223
  Transmission Date: 20110831
  Serious: Yes (Hospitalization)
  Sender: FDA-Public Use
  Company Number: AXC-2010-000363

PATIENT
  Age: 78 Year
  Sex: Female

DRUGS (5)
  1. BEZATOL (BEZAFIBRATE) [Concomitant]
  2. INTERFERON [Concomitant]
  3. OPALMON (LIMAPROST) [Concomitant]
  4. ANPLAG (SARPOGRELATE HYDROCHLORIDE) [Concomitant]
  5. URSODEOXYCHOLIC ACID (URSODEOXYCHOLIC ACID) UNKNOWN [Suspect]
     Indication: PRODUCT USED FOR UNKNOWN INDICATION
     Dosage: ORAL
     Route: 048

REACTIONS (2)
  - HEPATITIS C [None]
  - CONDITION AGGRAVATED [None]
